FAERS Safety Report 5110702-X (Version None)
Quarter: 2006Q3

REPORT INFORMATION
  Report Type: 
  Country: None (occurrence: None)
  Receive Date: 20060919
  Receipt Date: 20060907
  Transmission Date: 20061208
  Serious: Yes (Other)
  Sender: FDA-Public Use
  Company Number: 2006-201

PATIENT
  Age: 81 Year
  Sex: Male

DRUGS (5)
  1. AZITHROMYCIN [Suspect]
  2. ATOVASTATIN [Concomitant]
  3. OMEPRAZOLE [Concomitant]
  4. FLUOXETINE [Concomitant]
  5. LORMETAZEPAM [Concomitant]

REACTIONS (7)
  - CEREBRAL ATROPHY [None]
  - CONFUSIONAL STATE [None]
  - DELIRIUM [None]
  - DISORIENTATION [None]
  - DISTURBANCE IN ATTENTION [None]
  - HALLUCINATION, VISUAL [None]
  - SLEEP DISORDER [None]
